FAERS Safety Report 6375209-0 (Version None)
Quarter: 2009Q3

REPORT INFORMATION
  Report Type: 
  Country: None (occurrence: None)
  Receive Date: 20090924
  Receipt Date: 20090917
  Transmission Date: 20100115
  Serious: No
  Sender: FDA-Public Use
  Company Number: US-GENENTECH-267962

PATIENT

DRUGS (6)
  1. BEVACIZUMAB [Suspect]
     Indication: GLIOMA
     Dosage: 10 MG/KG, Q2W
     Route: 042
  2. RADIATION THERAPY [Suspect]
     Indication: MALIGNANT GLIOMA
     Dosage: 30 GY, UNK
  3. KEPPRA [Concomitant]
     Indication: DRUG USE FOR UNKNOWN INDICATION
  4. DILANTIN [Concomitant]
     Indication: DRUG USE FOR UNKNOWN INDICATION
  5. TOPROL-XL [Concomitant]
     Indication: DRUG USE FOR UNKNOWN INDICATION
  6. ZOLOFT [Concomitant]
     Indication: DRUG USE FOR UNKNOWN INDICATION

REACTIONS (1)
  - OPTIC NEUROPATHY [None]
